FAERS Safety Report 7270748-2 (Version None)
Quarter: 2011Q1

REPORT INFORMATION
  Report Type: 
  Country: None (occurrence: None)
  Receive Date: 20110202
  Receipt Date: 20110118
  Transmission Date: 20110831
  Serious: No
  Sender: FDA-Public Use
  Company Number: US-B.I. PHARMACEUTICALS,INC./RIDGEFIELD-2011-BP-01816BP

PATIENT
  Sex: Female

DRUGS (3)
  1. VENTOLIN [Concomitant]
     Indication: EMPHYSEMA
     Route: 055
     Dates: start: 20091101
  2. SYMBICORT [Concomitant]
     Indication: EMPHYSEMA
     Route: 055
     Dates: start: 20091101
  3. SPIRIVA [Suspect]
     Indication: EMPHYSEMA
     Dosage: 18 MCG
     Route: 055
     Dates: start: 20091101

REACTIONS (2)
  - EYE PAIN [None]
  - DRY MOUTH [None]
